FAERS Safety Report 6818127-3 (Version None)
Quarter: 2010Q3

REPORT INFORMATION
  Report Type: 
  Country: None (occurrence: None)
  Receive Date: 20100706
  Receipt Date: 20100624
  Transmission Date: 20110219
  Serious: Yes (Other)
  Sender: FDA-Public Use
  Company Number: US-ASTRAZENECA-2010SE29797

PATIENT
  Age: 53 Year
  Sex: Male

DRUGS (18)
  1. SEROQUEL XR [Suspect]
     Route: 048
     Dates: start: 20100323, end: 20100330
  2. SEROQUEL XR [Interacting]
     Dosage: DOSE INCREASED
     Route: 048
     Dates: start: 20100330
  3. SEROQUEL XR [Interacting]
     Dosage: DOSE REDUCED
     Route: 048
  4. AMBIEN SR [Interacting]
     Route: 048
  5. RITALIN-SR [Concomitant]
     Route: 048
  6. RITALIN-SR [Concomitant]
     Route: 048
  7. ATENOLOL [Concomitant]
     Route: 048
  8. PRAZOSIN HCL [Concomitant]
     Route: 048
  9. PRAZOSIN HCL [Concomitant]
     Route: 048
  10. LISINOPRIL [Concomitant]
     Route: 048
  11. CITALOPRAM [Concomitant]
     Route: 048
  12. TRAZODONE HCL [Concomitant]
     Route: 048
  13. LAMICTAL [Concomitant]
     Route: 048
  14. VYTORIN [Concomitant]
     Dosage: 10/30 MG AT NIGHT DAILY
     Route: 048
  15. ASPIRIN [Concomitant]
     Route: 048
  16. MULTIVITAMIN DAILY [Concomitant]
     Dosage: DAILY
  17. GLUCOSAMINE DAILY [Concomitant]
     Dosage: DAILY
  18. HYDROCODONE WITH APAP [Concomitant]
     Dosage: 5/500 MG EIGHT TABLETS DAILY

REACTIONS (6)
  - AGGRESSION [None]
  - AGITATION [None]
  - DRUG INTERACTION [None]
  - LOSS OF CONSCIOUSNESS [None]
  - POISONING [None]
  - ROAD TRAFFIC ACCIDENT [None]
